FAERS Safety Report 8874244 (Version 6)
Quarter: 2013Q3

REPORT INFORMATION
  Report Type: Report from Study
  Country: DE (occurrence: DE)
  Receive Date: 20121023
  Receipt Date: 20130730
  Transmission Date: 20140515
  Serious: Yes (Life-Threatening, Hospitalization, Other)
  Sender: FDA-Public Use
  Company Number: DE-ABBOTT-12P-062-0996744-00

PATIENT
  Age: 83 Year
  Sex: Male
  Weight: 75 kg

DRUGS (18)
  1. ZEMPLAR [Suspect]
     Indication: HYPERPARATHYROIDISM
     Route: 048
     Dates: start: 20120210
  2. DIURECTIC AGENTS (NAMES NOT REPORTED) [Suspect]
     Indication: PRODUCT USED FOR UNKNOWN INDICATION
  3. EXFORGE [Concomitant]
     Indication: PRODUCT USED FOR UNKNOWN INDICATION
     Dosage: 5MG-160MG
     Route: 048
     Dates: end: 20120508
  4. EXFORGE [Concomitant]
     Dosage: 5MG-160MG HALF IN ONE DAY
     Dates: start: 20120509
  5. TORSEMID [Concomitant]
     Indication: PRODUCT USED FOR UNKNOWN INDICATION
     Route: 048
  6. HYDROCHLOROTHIAZIDE [Concomitant]
     Indication: PRODUCT USED FOR UNKNOWN INDICATION
     Route: 048
  7. METOPROLOL [Concomitant]
     Indication: PRODUCT USED FOR UNKNOWN INDICATION
  8. ACETYLSALICYLIC ACID [Concomitant]
     Indication: PRODUCT USED FOR UNKNOWN INDICATION
  9. MOLSIDOMIN [Concomitant]
     Indication: PRODUCT USED FOR UNKNOWN INDICATION
     Dosage: HALF PER DAY
     Route: 048
  10. SIMVASTATIN [Concomitant]
     Indication: PRODUCT USED FOR UNKNOWN INDICATION
     Dosage: HALF PER DAY
     Route: 048
  11. ADENURIC [Concomitant]
     Indication: PRODUCT USED FOR UNKNOWN INDICATION
     Dosage: HALF PER DAY
     Route: 048
  12. OMEPRAZOLE [Concomitant]
     Indication: PRODUCT USED FOR UNKNOWN INDICATION
     Route: 048
  13. URIVESC [Concomitant]
     Indication: PRODUCT USED FOR UNKNOWN INDICATION
     Route: 048
  14. METHOXY-POLYETHYLENGLYCOL-EPOETIN BETA [Concomitant]
     Indication: PRODUCT USED FOR UNKNOWN INDICATION
     Route: 058
     Dates: start: 20111130, end: 20120207
  15. METHOXY-POLYETHYLENGLYCOL-EPOETIN BETA [Concomitant]
     Route: 058
     Dates: start: 20120411, end: 20120509
  16. METHOXY-POLYETHYLENGLYCOL-EPOETIN BETA [Concomitant]
     Route: 058
     Dates: start: 20120307, end: 20120307
  17. METHOXY-POLYETHYLENGLYCOL-EPOETIN BETA [Concomitant]
     Route: 058
     Dates: start: 20120606, end: 20120606
  18. PREDNISOLONE [Concomitant]
     Indication: PRODUCT USED FOR UNKNOWN INDICATION
     Route: 048
     Dates: start: 20120619, end: 20120703

REACTIONS (14)
  - Fall [Recovered/Resolved]
  - Atrioventricular block first degree [Recovered/Resolved]
  - Cardiac tamponade [Recovered/Resolved]
  - Coronary artery stenosis [Recovered/Resolved]
  - Syncope [Recovered/Resolved]
  - Gastrointestinal haemorrhage [Recovered/Resolved]
  - Gastrointestinal telangiectasia [Recovered/Resolved]
  - Aortic valve stenosis [Recovered/Resolved]
  - Dry mouth [Recovered/Resolved]
  - Dysgeusia [Recovered/Resolved]
  - Fatigue [Recovered/Resolved]
  - Gout [Recovered/Resolved]
  - Troponin increased [Unknown]
  - Chest pain [Recovered/Resolved]
